FAERS Safety Report 5520241-X (Version None)
Quarter: 2007Q4

REPORT INFORMATION
  Report Type: 
  Country: None (occurrence: None)
  Receive Date: 20071116
  Receipt Date: 20071109
  Transmission Date: 20080405
  Serious: Yes (Disabling, Other)
  Sender: FDA-Public Use
  Company Number: US-GENENTECH-246248

PATIENT
  Sex: Female
  Weight: 59.41 kg

DRUGS (4)
  1. LUCENTIS [Suspect]
     Indication: MACULAR DEGENERATION
     Dosage: 0.5 MG, 1/MONTH
     Route: 031
     Dates: start: 20061116
  2. AVASTIN [Suspect]
     Indication: DRUG USE FOR UNKNOWN INDICATION
  3. PRED FORTE [Concomitant]
     Indication: DRUG USE FOR UNKNOWN INDICATION
     Dosage: UNK, QID
  4. CYCLOGYL [Concomitant]
     Indication: DRUG USE FOR UNKNOWN INDICATION
     Dosage: UNK, QHS

REACTIONS (1)
  - RETINAL DETACHMENT [None]
